FAERS Safety Report 23547330 (Version 1)
Quarter: 2024Q1

REPORT INFORMATION
  Report Type: Spontaneous
  Country: US (occurrence: US)
  Receive Date: 20240221
  Receipt Date: 20240221
  Transmission Date: 20240410
  Serious: No
  Sender: FDA-Public Use
  Company Number: US-CELLTRION INC.-2023US024257

PATIENT

DRUGS (1)
  1. YUFLYMA [Suspect]
     Active Substance: ADALIMUMAB-AATY
     Indication: Colitis ulcerative
     Dosage: 40 MG, EVERY OTHER WEEK (THERAPY DATES: ABOUT A MONTH AGO-ONGOING)
     Route: 058

REACTIONS (1)
  - Condition aggravated [Recovered/Resolved]
